APPROVED DRUG PRODUCT: MEFENAMIC ACID
Active Ingredient: MEFENAMIC ACID
Strength: 250MG
Dosage Form/Route: CAPSULE;ORAL
Application: A091322 | Product #001 | TE Code: AB
Applicant: LUPIN LTD
Approved: Jul 22, 2011 | RLD: No | RS: No | Type: RX